FAERS Safety Report 5194261-1 (Version None)
Quarter: 2006Q4

REPORT INFORMATION
  Report Type: 
  Country: None (occurrence: None)
  Receive Date: 20061228
  Receipt Date: 20061213
  Transmission Date: 20070319
  Serious: Yes (Life-Threatening, Other)
  Sender: FDA-Public Use
  Company Number: JP-BOEHRINGER INGELHEIM PHARMACEUTICALS, INC.-2006-BP-14650YA

PATIENT
  Sex: Male
  Weight: 44 kg

DRUGS (13)
  1. HARNAL (TAMSULOSIN) ORODISPERSABLE CR [Suspect]
     Indication: DYSURIA
     Route: 048
  2. LODOPIN [Suspect]
     Indication: SCHIZOPHRENIA
     Route: 048
     Dates: start: 20060921, end: 20061018
  3. LODOPIN [Suspect]
     Route: 048
     Dates: start: 20060921, end: 20060929
  4. AKINETON [Concomitant]
     Route: 048
  5. MAGMITT [Concomitant]
     Route: 048
  6. SENNOSIDE (SENNOSIDE A+B CALCIUM) [Concomitant]
     Route: 048
  7. ZYPREXA [Concomitant]
     Route: 048
  8. NITRAZEPAM [Concomitant]
     Route: 048
  9. VEGETAMIN A [Concomitant]
     Route: 048
  10. RISPERDAL [Concomitant]
  11. ROHYPNOL [Concomitant]
     Route: 048
  12. CETILO (RHUBARB SENNA COMBINED DRUG) [Concomitant]
     Route: 048
  13. GASMOTIN [Concomitant]
     Route: 048

REACTIONS (3)
  - CARDIO-RESPIRATORY ARREST [None]
  - CONVULSION [None]
  - STRESS [None]
